FAERS Safety Report 7220621-0 (Version None)
Quarter: 2011Q1

REPORT INFORMATION
  Report Type: 
  Country: None (occurrence: None)
  Receive Date: 20110111
  Receipt Date: 20110105
  Transmission Date: 20110831
  Serious: Yes (Hospitalization)
  Sender: FDA-Public Use
  Company Number: JP-PFIZER INC-2011002148

PATIENT
  Age: 76 Year
  Sex: Male
  Weight: 57.5 kg

DRUGS (14)
  1. PAXIL [Concomitant]
     Dosage: UNK
     Route: 048
     Dates: start: 20100729, end: 20100816
  2. LEXOTAN [Concomitant]
     Dosage: UNK
     Route: 048
     Dates: start: 20100729, end: 20100811
  3. ASPIRIN [Concomitant]
     Dosage: UNK
     Route: 048
  4. TAKEPRON [Concomitant]
     Dosage: UNK
     Route: 048
     Dates: end: 20100930
  5. MICARDIS [Concomitant]
     Dosage: UNK
     Route: 048
  6. ATELEC [Concomitant]
     Dosage: UNK
     Route: 048
  7. QUAZEPAM [Concomitant]
     Dosage: UNK
     Route: 048
     Dates: end: 20100921
  8. SENIRAN [Concomitant]
     Indication: DEPRESSION
     Dosage: UNK
     Route: 048
     Dates: start: 20100729, end: 20100810
  9. SERTRALINE HYDROCHLORIDE [Suspect]
     Indication: DEPRESSION
     Dosage: 25 MG, 1X/DAY
     Dates: start: 20100729, end: 20100812
  10. ARICEPT [Concomitant]
     Dosage: UNK
     Route: 048
  11. THYRADIN S [Concomitant]
     Dosage: UNK
     Route: 048
     Dates: end: 20100816
  12. SALOBEL [Concomitant]
     Dosage: UNK
     Route: 048
  13. PERSANTIN [Concomitant]
     Dosage: UNK
     Route: 048
  14. BETAMETHASONE SODIUM PHOSPHATE/GENTAMICIN [Concomitant]
     Dosage: UNK
     Route: 050
     Dates: end: 20100813

REACTIONS (1)
  - IRRITABILITY [None]
